FAERS Safety Report 6441261-7 (Version None)
Quarter: 2009Q4

REPORT INFORMATION
  Report Type: 
  Country: None (occurrence: None)
  Receive Date: 20091116
  Receipt Date: 20091104
  Transmission Date: 20100525
  Serious: No
  Sender: FDA-Public Use
  Company Number: CA-ELI_LILLY_AND_COMPANY-CA200909001001

PATIENT
  Age: 45 Year
  Sex: Male

DRUGS (4)
  1. CIALIS [Suspect]
     Indication: ERECTILE DYSFUNCTION
     Dosage: 5 MG, UNKNOWN
     Route: 065
     Dates: start: 20090301
  2. CIALIS [Suspect]
     Dosage: 10 MG, UNKNOWN
     Route: 065
     Dates: start: 20090101
  3. CIALIS [Suspect]
     Dosage: 20 MG, UNKNOWN
     Route: 065
     Dates: start: 20090101
  4. ANDROGEL [Concomitant]
     Dosage: UNK, UNKNOWN
     Route: 065

REACTIONS (2)
  - ACCOMMODATION DISORDER [None]
  - VISUAL IMPAIRMENT [None]
